FAERS Safety Report 14199111 (Version 4)
Quarter: 2018Q3

REPORT INFORMATION
  Report Type: Report from Study
  Country: JP (occurrence: JP)
  Receive Date: 20171117
  Receipt Date: 20180824
  Transmission Date: 20181010
  Serious: Yes (Hospitalization)
  Sender: FDA-Public Use
  Company Number: JP-VIFOR (INTERNATIONAL) INC.-VIT-2017-12726

PATIENT
  Age: 78 Year
  Sex: Male
  Weight: 54.4 kg

DRUGS (25)
  1. ATELEC [Concomitant]
     Active Substance: CILNIDIPINE
     Route: 048
     Dates: end: 20160823
  2. MICARDIS [Concomitant]
     Active Substance: TELMISARTAN
     Dosage: IF SYSTOLIC BLOOD PRESSURE WAS OVER 120, AFTER BREAKFAST ON NON HD DAYS
     Route: 048
     Dates: start: 20160824
  3. HEPARINOID [Concomitant]
     Active Substance: CHONDROITIN SULFATE (BOVINE)
  4. ALMETA [Concomitant]
     Active Substance: ALCLOMETASONE DIPROPIONATE
  5. REBAMIPIDE [Concomitant]
     Active Substance: REBAMIPIDE
     Indication: GASTRITIS PROPHYLAXIS
     Route: 048
     Dates: start: 20170212
  6. NESP [Concomitant]
     Active Substance: DARBEPOETIN ALFA
  7. NESP [Concomitant]
     Active Substance: DARBEPOETIN ALFA
     Dates: start: 20170301, end: 20170517
  8. NESP [Concomitant]
     Active Substance: DARBEPOETIN ALFA
     Dates: start: 20170531, end: 20170712
  9. VELPHORO [Suspect]
     Active Substance: FERRIC OXYHYDROXIDE
     Indication: HYPERPHOSPHATAEMIA
     Route: 048
     Dates: start: 20160810, end: 20160906
  10. VELPHORO [Suspect]
     Active Substance: FERRIC OXYHYDROXIDE
     Route: 048
     Dates: start: 20160907
  11. BERAPROST SODIUM [Concomitant]
     Active Substance: BERAPROST SODIUM
     Route: 048
  12. TSUMURA DAIKENCHUTO [Concomitant]
     Active Substance: HERBALS
     Route: 048
  13. FRANDOL TAPE [Concomitant]
     Active Substance: ISOSORBIDE DINITRATE
     Dates: end: 20160927
  14. SALICYLIC ACID. [Concomitant]
     Active Substance: SALICYLIC ACID
  15. BELSOMRA [Concomitant]
     Active Substance: SUVOREXANT
     Indication: SLEEP DISORDER
     Route: 048
     Dates: start: 20170212
  16. TEPRENONE [Concomitant]
     Active Substance: TEPRENONE
     Route: 048
  17. BIO?THREE [Concomitant]
     Active Substance: HERBALS
     Route: 048
  18. ATELEC [Concomitant]
     Active Substance: CILNIDIPINE
     Dosage: IF SYSTOLIC BLOOD PRESSURE WAS OVER 120
     Route: 048
     Dates: start: 20160823
  19. NESP [Concomitant]
     Active Substance: DARBEPOETIN ALFA
     Dates: start: 20170802, end: 20170802
  20. ZINC OXIDE. [Concomitant]
     Active Substance: ZINC OXIDE
     Route: 050
     Dates: start: 20170119
  21. TEPRENONE [Concomitant]
     Active Substance: TEPRENONE
     Route: 048
     Dates: end: 20170322
  22. TRIAZOLAM. [Concomitant]
     Active Substance: TRIAZOLAM
     Route: 048
  23. MICARDIS [Concomitant]
     Active Substance: TELMISARTAN
     Route: 048
     Dates: end: 20160823
  24. NESP [Concomitant]
     Active Substance: DARBEPOETIN ALFA
     Dates: end: 20170215
  25. RABEPRAZOLE [Concomitant]
     Active Substance: RABEPRAZOLE
     Route: 048

REACTIONS (4)
  - Cervical vertebral fracture [Recovering/Resolving]
  - Hyperparathyroidism secondary [Recovered/Resolved]
  - Condition aggravated [Recovered/Resolved]
  - Bronchitis [Recovered/Resolved]

NARRATIVE: CASE EVENT DATE: 201608
